FAERS Safety Report 15423183 (Version 1)
Quarter: 2018Q3

REPORT INFORMATION
  Report Type: Spontaneous
  Country: US (occurrence: US)
  Receive Date: 20180925
  Receipt Date: 20180925
  Transmission Date: 20181010
  Serious: No
  Sender: FDA-Public Use
  Company Number: US-IPSEN BIOPHARMACEUTICALS, INC.-2018-14489

PATIENT
  Sex: Male

DRUGS (1)
  1. SOMATULINE [Suspect]
     Active Substance: LANREOTIDE ACETATE
     Indication: NEUROENDOCRINE CARCINOMA
     Route: 058
     Dates: start: 2017

REACTIONS (5)
  - Arthralgia [Unknown]
  - Injection site discomfort [Unknown]
  - Injection site mass [Unknown]
  - Pain [Unknown]
  - Gait disturbance [Unknown]
